FAERS Safety Report 17356048 (Version 1)
Quarter: 2020Q1

REPORT INFORMATION
  Report Type: Spontaneous
  Country: US (occurrence: US)
  Receive Date: 20200131
  Receipt Date: 20200131
  Transmission Date: 20200409
  Serious: No
  Sender: FDA-Public Use
  Company Number: US-TEVA-2020-US-1174687

PATIENT
  Age: 13 Year
  Sex: Female

DRUGS (1)
  1. CLARAVIS [Suspect]
     Active Substance: ISOTRETINOIN
     Route: 065
     Dates: start: 20200112

REACTIONS (4)
  - Pyrexia [Unknown]
  - Cough [Unknown]
  - Body temperature decreased [Unknown]
  - Influenza [Unknown]

NARRATIVE: CASE EVENT DATE: 20200116
